FAERS Safety Report 21107133 (Version 1)
Quarter: 2022Q3

REPORT INFORMATION
  Report Type: Spontaneous
  Country: US (occurrence: None)
  Receive Date: 20220720
  Receipt Date: 20220720
  Transmission Date: 20221027
  Serious: Yes (Other)
  Sender: FDA-Public Use
  Company Number: None

PATIENT
  Age: 40 Year
  Sex: Female
  Weight: 53.07 kg

DRUGS (2)
  1. VENLAFAXINE [Suspect]
     Active Substance: VENLAFAXINE HYDROCHLORIDE
     Indication: Major depression
     Dosage: 37.5MG DAILY PO?
     Route: 048
     Dates: start: 201412
  2. VENLAFAXINE [Suspect]
     Active Substance: VENLAFAXINE HYDROCHLORIDE
     Indication: Major depression
     Dosage: 37.5MG DAILY PO
     Dates: start: 201412

REACTIONS (4)
  - Product substitution issue [None]
  - Product formulation issue [None]
  - Coeliac disease [None]
  - Gluten sensitivity [None]

NARRATIVE: CASE EVENT DATE: 20200210
